FAERS Safety Report 5035574-3 (Version None)
Quarter: 2006Q2

REPORT INFORMATION
  Report Type: 
  Country: None (occurrence: None)
  Receive Date: 20060526
  Receipt Date: 20060314
  Transmission Date: 20061013
  Serious: Yes (Hospitalization)
  Sender: FDA-Public Use
  Company Number: FABR-11346

PATIENT
  Age: 44 Year
  Sex: Male
  Weight: 69.4003 kg

DRUGS (11)
  1. FABRAZYME [Suspect]
     Indication: FABRY'S DISEASE
     Dosage: SEE IMAGE
     Route: 042
     Dates: start: 20030331, end: 20050617
  2. RISPERDAL [Suspect]
  3. EFFEXOR [Concomitant]
  4. REGLAN [Concomitant]
  5. RENAVITE [Concomitant]
  6. PROTONIX [Concomitant]
  7. DEPAKOTE [Concomitant]
  8. ATIVAN [Concomitant]
  9. EPOGEN [Concomitant]
  10. PHOSLO [Concomitant]
  11. RISPERDAL [Concomitant]

REACTIONS (8)
  - ABDOMINAL PAIN [None]
  - BLOOD ALBUMIN DECREASED [None]
  - COLON ADENOMA [None]
  - DEPRESSION [None]
  - GYNAECOMASTIA [None]
  - NAUSEA [None]
  - ORAL INTAKE REDUCED [None]
  - VOMITING [None]
